FAERS Safety Report 10592286 (Version 2)
Quarter: 2015Q1

REPORT INFORMATION
  Report Type: Spontaneous
  Country: IT (occurrence: None)
  Receive Date: 20141117
  Receipt Date: 20150219
  Transmission Date: 20150720
  Serious: Yes (Other)
  Sender: FDA-Public Use
  Company Number: FK201405122

PATIENT
  Age: 88 Year
  Sex: Female

DRUGS (6)
  1. OMEPRAZOLO SANDOZ (OMEPRAZOLE) [Concomitant]
  2. LEVOFLOXACIN. [Suspect]
     Active Substance: LEVOFLOXACIN
     Indication: PLEURAL EFFUSION
     Dosage: 500 MG, 1 IN 1 D, INTRAVENOUS DRIP
     Route: 041
     Dates: start: 20141028, end: 20141031
  3. LUVION (CANRENOIC ACID) [Concomitant]
     Active Substance: CANRENOIC ACID
  4. NITROGLYCERIN (GLYCERYL TRINITRATE) [Concomitant]
  5. LEVOPRAID (SULPIRIDE) [Concomitant]
  6. LASIX [Concomitant]
     Active Substance: FUROSEMIDE

REACTIONS (1)
  - Delirium [None]

NARRATIVE: CASE EVENT DATE: 20141031
